FAERS Safety Report 8687702 (Version 2)
Quarter: 2012Q4

REPORT INFORMATION
  Report Type: Report from Study
  Country: US (occurrence: US)
  Receive Date: 20120727
  Receipt Date: 20121102
  Transmission Date: 20130627
  Serious: Yes (Other)
  Sender: FDA-Public Use
  Company Number: US-ABBOTT-12P-163-0957941-00

PATIENT
  Age: 43 Year
  Sex: Female

DRUGS (23)
  1. HUMIRA 40 MG/0.8 ML PEN [Suspect]
     Indication: RHEUMATOID ARTHRITIS
     Dates: start: 201010, end: 2011
  2. HUMIRA 40 MG/0.8 ML PEN [Suspect]
     Dates: start: 201110
  3. LIPITOR [Suspect]
     Indication: PRODUCT USED FOR UNKNOWN INDICATION
     Dates: end: 201201
  4. MULTIVITAMIN [Concomitant]
     Indication: PRODUCT USED FOR UNKNOWN INDICATION
     Dosage: Daily
  5. OXYCONTIN [Concomitant]
     Indication: RHEUMATOID ARTHRITIS
  6. OXYCONTIN [Concomitant]
     Indication: FIBROMYALGIA
  7. OXYCONTIN [Concomitant]
     Indication: PAIN
  8. SAVELLA [Concomitant]
     Indication: FIBROMYALGIA
  9. VITAMIN D3 [Concomitant]
     Indication: VITAMIN SUPPLEMENTATION
     Dosage: Daily
  10. CRESTOR [Concomitant]
     Indication: BLOOD CHOLESTEROL INCREASED
     Dosage: 20 mg daily
     Dates: start: 201201
  11. WELLBUTRIN XR [Concomitant]
     Indication: DEPRESSION
  12. L METHYLFOLATE [Concomitant]
     Indication: BLOOD FOLATE ABNORMAL
     Dosage: 15 mg daily
  13. NABUMETONE [Concomitant]
     Indication: ANTIINFLAMMATORY THERAPY
  14. NORFLEX [Concomitant]
     Indication: MUSCLE RELAXANT THERAPY
  15. FLEXERIL [Concomitant]
     Indication: MUSCLE RELAXANT THERAPY
     Dosage: At bedtime
  16. TOPAMAX [Concomitant]
     Indication: MIGRAINE PROPHYLAXIS
     Dosage: At hour of sleep
  17. MELATONIN [Concomitant]
     Indication: INSOMNIA
     Dosage: At bedtime
  18. SEROQUEL [Concomitant]
     Indication: INSOMNIA
     Dosage: At hour of sleep
     Dates: start: 201204
  19. METHOTREXATE [Concomitant]
     Indication: PRODUCT USED FOR UNKNOWN INDICATION
  20. PERCOCET [Concomitant]
     Indication: ARTHRALGIA
     Dosage: 10/325 mg
     Dates: start: 201206
  21. PERCOCET [Concomitant]
     Indication: FIBROMYALGIA
  22. PERCOCET [Concomitant]
     Indication: PAIN
  23. OXYCODONE [Concomitant]
     Indication: PAIN

REACTIONS (20)
  - Cerebral artery embolism [Not Recovered/Not Resolved]
  - Intervertebral disc protrusion [Unknown]
  - Multiple sclerosis [Unknown]
  - Cerebral cyst [Unknown]
  - Cardiac disorder [Unknown]
  - Arthralgia [Unknown]
  - Headache [Unknown]
  - Alanine aminotransferase increased [Unknown]
  - Aspartate aminotransferase increased [Unknown]
  - Herpes zoster [Unknown]
  - Pain [Unknown]
  - Pruritus [Unknown]
  - Walking aid user [Unknown]
  - Osteopenia [Unknown]
  - Depression [Recovering/Resolving]
  - Epstein-Barr virus infection [Unknown]
  - Aspartate aminotransferase increased [Recovering/Resolving]
  - Alanine aminotransferase increased [Recovering/Resolving]
  - Tension headache [Unknown]
  - Central nervous system lesion [Not Recovered/Not Resolved]
